FAERS Safety Report 6316761-0 (Version None)
Quarter: 2009Q3

REPORT INFORMATION
  Report Type: 
  Country: None (occurrence: None)
  Receive Date: 20090820
  Receipt Date: 20090810
  Transmission Date: 20100115
  Serious: Yes (Hospitalization)
  Sender: FDA-Public Use
  Company Number: JP-ABBOTT-09P-087-0570116-00

PATIENT
  Sex: Male

DRUGS (5)
  1. LUPRON DEPOT [Suspect]
     Indication: SPINAL MUSCULAR ATROPHY
     Dosage: PLACEBO
     Route: 058
     Dates: start: 20061222, end: 20071205
  2. LUPRON DEPOT [Suspect]
     Dosage: OPEN LABEL
     Route: 058
     Dates: start: 20080220
  3. MAGNESIUM OXIDE [Concomitant]
     Indication: CONSTIPATION
     Route: 048
     Dates: start: 20071113
  4. CYANOCOBALAMIN [Concomitant]
     Indication: DIZZINESS
     Route: 048
     Dates: start: 20081209
  5. CYANOCOBALAMIN [Concomitant]
     Indication: SUDDEN HEARING LOSS

REACTIONS (1)
  - LUMBAR VERTEBRAL FRACTURE [None]
